FAERS Safety Report 25795263 (Version 4)
Quarter: 2025Q4

REPORT INFORMATION
  Report Type: Report from Study
  Country: CO (occurrence: CO)
  Receive Date: 20250912
  Receipt Date: 20251218
  Transmission Date: 20260118
  Serious: Yes (Other)
  Sender: MIRUM PHARMACEUTICALS
  Company Number: CO-MIRUM PHARMACEUTICALS, INC.-CO-MIR-24-00196

PATIENT

DRUGS (13)
  1. LIVMARLI [Suspect]
     Active Substance: MARALIXIBAT CHLORIDE
     Indication: Alagille syndrome
     Dosage: 1.75 MILLILITER, QD
     Route: 048
     Dates: start: 20240524, end: 20240624
  2. LIVMARLI [Suspect]
     Active Substance: MARALIXIBAT CHLORIDE
     Dosage: 1.75 MILLILITER, QD
     Route: 048
     Dates: start: 20250907, end: 20251023
  3. LIVMARLI [Suspect]
     Active Substance: MARALIXIBAT CHLORIDE
     Dosage: 1.75 MILLILITER, QD
     Route: 048
     Dates: start: 20250106, end: 20250704
  4. LIVMARLI [Suspect]
     Active Substance: MARALIXIBAT CHLORIDE
     Dosage: 1.75 MILLILITER, QD
     Route: 048
     Dates: start: 20250711, end: 20250827
  5. LIVMARLI [Suspect]
     Active Substance: MARALIXIBAT CHLORIDE
     Dosage: 1.75 MILLILITER, QD
     Route: 048
     Dates: start: 20241206, end: 20241228
  6. LIVMARLI [Suspect]
     Active Substance: MARALIXIBAT CHLORIDE
     Dosage: 1.75 MILLILITER, QD
     Route: 048
     Dates: start: 20240903, end: 20241130
  7. LIVMARLI [Suspect]
     Active Substance: MARALIXIBAT CHLORIDE
     Dosage: 1.75 MILLILITER, QD
     Route: 048
     Dates: start: 20240708, end: 20240824
  8. LIVMARLI [Suspect]
     Active Substance: MARALIXIBAT CHLORIDE
     Dosage: 1.75 MILLILITER, QD
     Route: 048
     Dates: start: 20231104, end: 20240323
  9. LIVMARLI [Suspect]
     Active Substance: MARALIXIBAT CHLORIDE
     Dosage: 1.75 MILLILITER
     Route: 048
     Dates: start: 20251106
  10. URSODIOL [Concomitant]
     Active Substance: URSODIOL
     Indication: Alagille syndrome
     Dosage: UNK
     Route: 065
  11. VITAMIN K [Concomitant]
     Active Substance: PHYTONADIONE
     Indication: Alagille syndrome
     Dosage: UNK
     Route: 065
  12. .ALPHA.-TOCOPHEROL [Concomitant]
     Active Substance: .ALPHA.-TOCOPHEROL
     Indication: Alagille syndrome
     Dosage: UNK
     Route: 065
  13. CALCIUM CARBONATE\CHOLECALCIFEROL [Concomitant]
     Active Substance: CALCIUM CARBONATE\CHOLECALCIFEROL
     Indication: Alagille syndrome
     Dosage: UNK
     Route: 065

REACTIONS (9)
  - Blood alkaline phosphatase increased [Not Recovered/Not Resolved]
  - Bile acids increased [Not Recovered/Not Resolved]
  - Aspartate aminotransferase increased [Not Recovered/Not Resolved]
  - Alanine aminotransferase increased [Not Recovered/Not Resolved]
  - Gamma-glutamyltransferase increased [Not Recovered/Not Resolved]
  - Pruritus [Recovered/Resolved]
  - Insurance issue [Not Recovered/Not Resolved]
  - Product dispensing issue [Not Recovered/Not Resolved]
  - Therapy interrupted [Not Recovered/Not Resolved]

NARRATIVE: CASE EVENT DATE: 20240323
